FAERS Safety Report 16771508 (Version 1)
Quarter: 2019Q3

REPORT INFORMATION
  Report Type: Spontaneous
  Country: US (occurrence: US)
  Receive Date: 20190904
  Receipt Date: 20190904
  Transmission Date: 20191005
  Serious: No
  Sender: FDA-Public Use
  Company Number: US-ALEXION PHARMACEUTICALS INC.-A201912936

PATIENT
  Age: 22 Month
  Sex: Female

DRUGS (2)
  1. KANUMA [Suspect]
     Active Substance: SEBELIPASE ALFA
     Dosage: 5 MG/KG, UNK
     Route: 065
  2. KANUMA [Suspect]
     Active Substance: SEBELIPASE ALFA
     Indication: LYSOSOMAL ACID LIPASE DEFICIENCY
     Dosage: 3 MG/KG, UNK
     Route: 065

REACTIONS (4)
  - Urticaria [Recovered/Resolved]
  - Laboratory test abnormal [Unknown]
  - Speech disorder developmental [Unknown]
  - Motor developmental delay [Unknown]
